FAERS Safety Report 21388869 (Version 1)
Quarter: 2022Q3

REPORT INFORMATION
  Report Type: Spontaneous
  Country: US (occurrence: US)
  Receive Date: 20220929
  Receipt Date: 20220929
  Transmission Date: 20221026
  Serious: No
  Sender: FDA-Public Use
  Company Number: US-JNJFOC-20220940184

PATIENT
  Sex: Male

DRUGS (1)
  1. XARELTO [Suspect]
     Active Substance: RIVAROXABAN
     Indication: Product used for unknown indication
     Route: 048
     Dates: start: 2009

REACTIONS (6)
  - Product packaging quantity issue [Unknown]
  - Product dose omission issue [Unknown]
  - Tremor [Unknown]
  - Dysstasia [Unknown]
  - Wrong technique in product usage process [Unknown]
  - Underdose [Unknown]
